FAERS Safety Report 7810540-0 (Version None)
Quarter: 2011Q4

REPORT INFORMATION
  Report Type: 
  Country: None (occurrence: None)
  Receive Date: 20111013
  Receipt Date: 20111005
  Transmission Date: 20120403
  Serious: Yes (Death, Other)
  Sender: FDA-Public Use
  Company Number: US-BIOGENIDEC-2011BI035557

PATIENT
  Age: 49 Year
  Sex: Female

DRUGS (1)
  1. TYSABRI [Suspect]
     Indication: MULTIPLE SCLEROSIS
     Route: 042
     Dates: start: 20090610, end: 20110728

REACTIONS (7)
  - SEPSIS [None]
  - PNEUMONIA [None]
  - SPEECH DISORDER [None]
  - URINARY TRACT INFECTION [None]
  - DYSPHAGIA [None]
  - BACTERIAL INFECTION [None]
  - LARGE INTESTINE PERFORATION [None]
